FAERS Safety Report 13691254 (Version 1)
Quarter: 2017Q2

REPORT INFORMATION
  Report Type: Report from Study
  Country: US (occurrence: US)
  Receive Date: 20170626
  Receipt Date: 20170626
  Transmission Date: 20170830
  Serious: Yes (Other)
  Sender: FDA-Public Use
  Company Number: US-MYLANLABS-2017M1037076

PATIENT

DRUGS (1)
  1. METHADONE [Suspect]
     Active Substance: METHADONE HYDROCHLORIDE
     Indication: DRUG USE DISORDER
     Route: 048

REACTIONS (4)
  - Leukoencephalopathy [Unknown]
  - Toxicity to various agents [Unknown]
  - Extrapyramidal disorder [Unknown]
  - Drug use disorder [Unknown]
